FAERS Safety Report 6511956-5 (Version None)
Quarter: 2009Q4

REPORT INFORMATION
  Report Type: 
  Country: None (occurrence: None)
  Receive Date: 20091222
  Receipt Date: 20090617
  Transmission Date: 20100525
  Serious: No
  Sender: FDA-Public Use
  Company Number: US-ASTRAZENECA-2009UW15784

PATIENT
  Sex: Female

DRUGS (1)
  1. CRESTOR [Suspect]
     Route: 048

REACTIONS (4)
  - APHTHOUS STOMATITIS [None]
  - LIP SWELLING [None]
  - PARAESTHESIA ORAL [None]
  - SWOLLEN TONGUE [None]
